FAERS Safety Report 19678966 (Version 1)
Quarter: 2021Q3

REPORT INFORMATION
  Report Type: Spontaneous
  Country: US (occurrence: US)
  Receive Date: 20210809
  Receipt Date: 20210809
  Transmission Date: 20211014
  Serious: Yes (Other)
  Sender: FDA-Public Use
  Company Number: US-ABBVIE-21K-163-3975666-00

PATIENT
  Sex: Male

DRUGS (3)
  1. DIVALPROEX SODIUM. [Suspect]
     Active Substance: DIVALPROEX SODIUM
     Indication: EPILEPSY
     Dosage: CHANGED TO GENERIC OF ER
     Route: 048
     Dates: start: 202009, end: 202104
  2. DEPAKOTE ER [Suspect]
     Active Substance: DIVALPROEX SODIUM
     Indication: EPILEPSY
     Dosage: CHANGED TO GENERIC OF DR
     Route: 048
     Dates: start: 2016, end: 202009
  3. DEPAKOTE ER [Suspect]
     Active Substance: DIVALPROEX SODIUM
     Dosage: DIVALPROEX EXTENDED RELEASE
     Route: 065
     Dates: start: 202104

REACTIONS (5)
  - Seizure [Recovered/Resolved]
  - Dyskinesia [Unknown]
  - Muscle twitching [Unknown]
  - Seizure [Recovered/Resolved]
  - Seizure [Unknown]

NARRATIVE: CASE EVENT DATE: 202101
